FAERS Safety Report 14471686 (Version 3)
Quarter: 2018Q1

REPORT INFORMATION
  Report Type: Spontaneous
  Country: DE (occurrence: DE)
  Receive Date: 20180131
  Receipt Date: 20180308
  Transmission Date: 20180509
  Serious: Yes (Other)
  Sender: FDA-Public Use
  Company Number: DE-BAUSCH-BL-2018-002080

PATIENT
  Age: 56 Year
  Sex: Male
  Weight: 215 kg

DRUGS (1)
  1. RELISTOR [Suspect]
     Active Substance: METHYLNALTREXONE BROMIDE
     Indication: FAECALOMA
     Dosage: 12 MG/0.6 ML
     Route: 058
     Dates: start: 20171218

REACTIONS (3)
  - Medical device removal [Unknown]
  - Syringe issue [Unknown]
  - Injection site injury [Unknown]

NARRATIVE: CASE EVENT DATE: 20171218
